FAERS Safety Report 6056484-9 (Version None)
Quarter: 2009Q1

REPORT INFORMATION
  Report Type: 
  Country: None (occurrence: None)
  Receive Date: 20090129
  Receipt Date: 20090122
  Transmission Date: 20090719
  Serious: Yes (Other)
  Sender: FDA-Public Use
  Company Number: PHBS2009IT00592

PATIENT
  Age: 43 Year
  Sex: Female
  Weight: 101 kg

DRUGS (1)
  1. OXCARBAZEPINE [Suspect]
     Indication: BINGE EATING
     Dosage: 1200 MG/DAY

REACTIONS (7)
  - ASTHENIA [None]
  - CONDITION AGGRAVATED [None]
  - CONFUSIONAL STATE [None]
  - SOMNOLENCE [None]
  - TREATMENT NONCOMPLIANCE [None]
  - TRICHOTILLOMANIA [None]
  - WEIGHT INCREASED [None]
